FAERS Safety Report 18889278 (Version 5)
Quarter: 2021Q3

REPORT INFORMATION
  Report Type: Report from Study
  Country: JP (occurrence: JP)
  Receive Date: 20210213
  Receipt Date: 20210803
  Transmission Date: 20211014
  Serious: Yes (Other)
  Sender: FDA-Public Use
  Company Number: JP-009507513-2012JPN002835J

PATIENT
  Age: 69 Year
  Sex: Male
  Weight: 63 kg

DRUGS (2)
  1. PEMBROLIZUMAB. [Suspect]
     Active Substance: PEMBROLIZUMAB
     Indication: RENAL CELL CARCINOMA STAGE IV
     Dosage: 200 MILLIGRAM, EVERY 3 WEEKS
     Route: 041
     Dates: start: 20201202, end: 20210217
  2. AXITINIB [Suspect]
     Active Substance: AXITINIB
     Indication: RENAL CELL CARCINOMA STAGE IV
     Dosage: 5 MILLIGRAM, TWICE A DAY
     Route: 048
     Dates: start: 20201202, end: 20210203

REACTIONS (5)
  - Diarrhoea [Recovered/Resolved]
  - Hyperthyroidism [Not Recovered/Not Resolved]
  - Proteinuria [Unknown]
  - Hepatic function abnormal [Recovering/Resolving]
  - Hypothyroidism [Unknown]

NARRATIVE: CASE EVENT DATE: 20201217
